FAERS Safety Report 21488144 (Version 1)
Quarter: 2022Q4

REPORT INFORMATION
  Report Type: Spontaneous
  Country: CN (occurrence: None)
  Receive Date: 20221020
  Receipt Date: 20221020
  Transmission Date: 20230113
  Serious: Yes (Other)
  Sender: FDA-Public Use
  Company Number: CN-ROCHE-3203177

PATIENT
  Age: 33 Year
  Sex: Male

DRUGS (9)
  1. TECENTRIQ [Suspect]
     Active Substance: ATEZOLIZUMAB
     Indication: Small cell lung cancer metastatic
     Dosage: SUBSEQUENT DOSES RECEIVED ON 24/MAY/2022, 15/JUN/2022, 06/JUL/2022. AFTER 1 CYCLE OF TREATMENT, PS1
     Route: 065
     Dates: start: 20220430
  2. ETOPOSIDE [Concomitant]
     Active Substance: ETOPOSIDE
     Indication: Small cell lung cancer metastatic
     Route: 065
     Dates: start: 20220430
  3. ETOPOSIDE [Concomitant]
     Active Substance: ETOPOSIDE
     Route: 065
     Dates: start: 20220524
  4. ETOPOSIDE [Concomitant]
     Active Substance: ETOPOSIDE
     Route: 065
     Dates: start: 20220615
  5. ETOPOSIDE [Concomitant]
     Active Substance: ETOPOSIDE
     Route: 065
     Dates: start: 20220706
  6. CARBOPLATIN [Concomitant]
     Active Substance: CARBOPLATIN
     Indication: Small cell lung cancer metastatic
     Route: 065
     Dates: start: 20220430
  7. CARBOPLATIN [Concomitant]
     Active Substance: CARBOPLATIN
     Route: 065
     Dates: start: 20220524
  8. CARBOPLATIN [Concomitant]
     Active Substance: CARBOPLATIN
     Route: 065
     Dates: start: 20220615
  9. CARBOPLATIN [Concomitant]
     Active Substance: CARBOPLATIN
     Route: 065
     Dates: start: 20220706

REACTIONS (3)
  - Myelosuppression [Unknown]
  - Gastrointestinal disorder [Unknown]
  - Ventricular extrasystoles [Unknown]
